FAERS Safety Report 5165041-8 (Version None)
Quarter: 2006Q4

REPORT INFORMATION
  Report Type: 
  Country: None (occurrence: None)
  Receive Date: 20061124
  Receipt Date: 20061113
  Transmission Date: 20070319
  Serious: Yes (Other)
  Sender: FDA-Public Use
  Company Number: 2006115943

PATIENT
  Age: 10 Year
  Sex: Female

DRUGS (3)
  1. ZARONTIN [Suspect]
     Indication: PETIT MAL EPILEPSY
     Dosage: 750 MG (250 MG, 3 IN 1 D), ORAL
     Route: 048
     Dates: start: 20060101
  2. DEPAKENE [Suspect]
     Indication: PETIT MAL EPILEPSY
     Dosage: ORAL
     Route: 048
  3. GARDENAL ^AVENTIS^ (PHENOBARBITAL) [Concomitant]

REACTIONS (7)
  - ABDOMINAL PAIN UPPER [None]
  - AGGRESSION [None]
  - CONVULSION [None]
  - DRUG DEPENDENCE [None]
  - HEADACHE [None]
  - SEDATION [None]
  - VOMITING [None]
